FAERS Safety Report 11584511 (Version 1)
Quarter: 2015Q4

REPORT INFORMATION
  Report Type: Spontaneous
  Country: FR (occurrence: FR)
  Receive Date: 20151001
  Receipt Date: 20151001
  Transmission Date: 20160304
  Serious: Yes (Hospitalization)
  Sender: FDA-Public Use
  Company Number: FR-CELGENE-FRA-2015095441

PATIENT
  Age: 86 Year
  Sex: Female

DRUGS (2)
  1. AZACITIDINE. [Suspect]
     Active Substance: AZACITIDINE
     Indication: ACUTE MYELOID LEUKAEMIA
     Route: 065
  2. ERYTHROPOIETIN [Concomitant]
     Active Substance: ERYTHROPOIETIN
     Indication: PANCYTOPENIA
     Route: 065

REACTIONS (9)
  - Asthenia [Unknown]
  - Skin reaction [Unknown]
  - Interstitial lung disease [Unknown]
  - Ear pain [Unknown]
  - Abdominal pain upper [Unknown]
  - Decreased appetite [Unknown]
  - Cough [Unknown]
  - Febrile neutropenia [Unknown]
  - Nausea [Unknown]
